FAERS Safety Report 7355697-3 (Version None)
Quarter: 2011Q1

REPORT INFORMATION
  Report Type: 
  Country: None (occurrence: None)
  Receive Date: 20110316
  Receipt Date: 20110314
  Transmission Date: 20110831
  Serious: Yes (Other)
  Sender: FDA-Public Use
  Company Number: SE-PFIZER INC-2010094648

PATIENT
  Age: 70 Year
  Sex: Female

DRUGS (6)
  1. LEVOTHYROXINE SODIUM [Concomitant]
     Dosage: UNK
  2. PREDNISOLON PFIZER [Suspect]
     Indication: DIPLOPIA
     Dosage: 40 MG, DAILY
     Dates: start: 20091101
  3. PREDNISOLON PFIZER [Suspect]
     Dosage: 2.5 MG, UNK
  4. PREDNISOLON PFIZER [Suspect]
     Dosage: 30 MG, DAILY
  5. CITALOPRAM [Concomitant]
     Dosage: UNK
  6. PREDNISOLON PFIZER [Suspect]
     Dosage: 20 MG,DAILY

REACTIONS (6)
  - MYALGIA [None]
  - MUSCULAR WEAKNESS [None]
  - ARTHRALGIA [None]
  - FEELING ABNORMAL [None]
  - FATIGUE [None]
  - JOINT STIFFNESS [None]
